FAERS Safety Report 21302102 (Version 1)
Quarter: 2022Q3

REPORT INFORMATION
  Report Type: Spontaneous
  Country: AU (occurrence: AU)
  Receive Date: 20220907
  Receipt Date: 20220907
  Transmission Date: 20221027
  Serious: Yes (Other)
  Sender: FDA-Public Use
  Company Number: AU-ASTELLAS-2022US031706

PATIENT
  Age: 59 Year
  Sex: Female

DRUGS (2)
  1. TACROLIMUS [Suspect]
     Active Substance: TACROLIMUS
     Indication: Renal transplant
     Route: 065
  2. MYCOPHENOLATE SODIUM [Concomitant]
     Active Substance: MYCOPHENOLATE SODIUM
     Indication: Renal transplant
     Route: 065

REACTIONS (5)
  - Cervical dysplasia [Unknown]
  - Genital herpes simplex [Unknown]
  - Skin cancer [Unknown]
  - Recurrent cancer [Unknown]
  - Cerebral toxoplasmosis [Recovering/Resolving]
